FAERS Safety Report 14413113 (Version 2)
Quarter: 2018Q2

REPORT INFORMATION
  Report Type: Not Available
  Country: US (occurrence: US)
  Receive Date: 20180119
  Receipt Date: 20180417
  Transmission Date: 20180711
  Serious: No
  Sender: FDA-Public Use
  Company Number: US-NEUROCRINE BIOSCIENCES INC.-2017NBI01754

PATIENT
  Age: 60 Year
  Sex: Female

DRUGS (1)
  1. INGREZZA [Suspect]
     Active Substance: VALBENAZINE
     Indication: PRODUCT USED FOR UNKNOWN INDICATION
     Route: 048
     Dates: start: 20171106, end: 20180228

REACTIONS (5)
  - Somnolence [Unknown]
  - Crying [Unknown]
  - Fatigue [Unknown]
  - Dysuria [Unknown]
  - Depressed mood [Unknown]

NARRATIVE: CASE EVENT DATE: 201711
